FAERS Safety Report 9130802 (Version 1)
Quarter: 2013Q1

REPORT INFORMATION
  Report Type: Spontaneous
  Country: ES (occurrence: ES)
  Receive Date: 20130301
  Receipt Date: 20130301
  Transmission Date: 20140127
  Serious: Yes (Other)
  Sender: FDA-Public Use
  Company Number: ES-JNJFOC-20130203647

PATIENT
  Age: 51 Year
  Sex: Female

DRUGS (5)
  1. INVEGA [Suspect]
     Indication: BIPOLAR DISORDER
     Route: 048
     Dates: start: 20130111, end: 20130117
  2. INVEGA [Suspect]
     Indication: BIPOLAR DISORDER
     Route: 048
     Dates: start: 20121204, end: 20130111
  3. ZYPREXA [Suspect]
     Indication: BIPOLAR DISORDER
     Route: 065
     Dates: end: 20121204
  4. DEPAKINE [Concomitant]
     Route: 065
  5. LORAZEPAM [Concomitant]
     Route: 065

REACTIONS (2)
  - Restless legs syndrome [Not Recovered/Not Resolved]
  - Akathisia [Recovered/Resolved]
